FAERS Safety Report 8419910-3 (Version None)
Quarter: 2012Q2

REPORT INFORMATION
  Report Type: 
  Country: None (occurrence: None)
  Receive Date: 20120607
  Receipt Date: 20120523
  Transmission Date: 20120825
  Serious: No
  Sender: FDA-Public Use
  Company Number: US-ASTRAZENECA-2012SE33363

PATIENT
  Age: 67 Year
  Sex: Male
  Weight: 100.7 kg

DRUGS (2)
  1. LIPITOR [Concomitant]
  2. PULMICORT FLEXHALER [Suspect]
     Indication: BRONCHITIS
     Dosage: 180 MCG TWO PUFFS DAILY
     Route: 055
     Dates: start: 20120522

REACTIONS (2)
  - COUGH [None]
  - OFF LABEL USE [None]
